FAERS Safety Report 9446564 (Version 1)
Quarter: 2013Q3

REPORT INFORMATION
  Report Type: Spontaneous
  Country: US (occurrence: US)
  Receive Date: 20130807
  Receipt Date: 20130807
  Transmission Date: 20140515
  Serious: No
  Sender: FDA-Public Use
  Company Number: US-AMGEN-USASP2013049448

PATIENT
  Age: 46 Year
  Sex: Male

DRUGS (2)
  1. ENBREL [Suspect]
     Indication: RHEUMATOID ARTHRITIS
     Dosage: 25 MG, 2 TIMES/WK
     Route: 065
     Dates: start: 20000101
  2. METHOTREXATE [Concomitant]
     Dosage: 10 MG, QWK, 4 TABLETS (2.5MG EACH) ONCE A WEEK
     Route: 048
     Dates: start: 199912

REACTIONS (2)
  - Solar dermatitis [Recovered/Resolved]
  - Skin discolouration [Recovered/Resolved]
